FAERS Safety Report 17414733 (Version 2)
Quarter: 2020Q2

REPORT INFORMATION
  Report Type: Spontaneous
  Country: US (occurrence: US)
  Receive Date: 20200213
  Receipt Date: 20200424
  Transmission Date: 20200713
  Serious: Yes (Other)
  Sender: FDA-Public Use
  Company Number: US-TAKEDA-2020TUS009034

PATIENT
  Age: 65 Year
  Sex: Male

DRUGS (6)
  1. REVLIMID [Concomitant]
     Active Substance: LENALIDOMIDE
     Dosage: UNK
     Route: 065
  2. ACYCLOVIR                          /00587301/ [Concomitant]
     Active Substance: ACYCLOVIR
     Dosage: UNK
     Route: 065
  3. ASPIRIN                            /00002701/ [Concomitant]
     Active Substance: ASPIRIN
     Dosage: UNK
     Route: 065
  4. NINLARO [Suspect]
     Active Substance: IXAZOMIB CITRATE
     Indication: NEOPLASM MALIGNANT
     Dosage: 3 MILLIGRAM, 1/WEEK
     Route: 048
  5. POMALYST [Suspect]
     Active Substance: POMALIDOMIDE
     Indication: NEOPLASM MALIGNANT
     Dosage: 4 MILLIGRAM
     Route: 048
  6. DEXAMETHASONE. [Concomitant]
     Active Substance: DEXAMETHASONE
     Dosage: UNK
     Route: 065

REACTIONS (3)
  - Malignant neoplasm progression [Unknown]
  - Pain in extremity [Unknown]
  - Off label use [Unknown]

NARRATIVE: CASE EVENT DATE: 20200413
